FAERS Safety Report 8384973-0 (Version None)
Quarter: 2012Q2

REPORT INFORMATION
  Report Type: 
  Country: None (occurrence: None)
  Receive Date: 20120524
  Receipt Date: 20120518
  Transmission Date: 20120825
  Serious: Yes (Other)
  Sender: FDA-Public Use
  Company Number: FR-CELGENEUS-056-50794-12052315

PATIENT
  Sex: Male
  Weight: 80 kg

DRUGS (6)
  1. REVLIMID [Suspect]
     Route: 048
     Dates: start: 20120418
  2. VIDAZA [Suspect]
     Route: 058
     Dates: start: 20120418
  3. VIDAZA [Suspect]
     Dosage: 140 MILLIGRAM
     Route: 058
     Dates: start: 20120321, end: 20120327
  4. REVLIMID [Suspect]
     Dosage: 100 MILLIGRAM
     Route: 048
     Dates: start: 20120324, end: 20120405
  5. LANSOPRAZOLE [Concomitant]
     Dosage: 30
     Route: 048
     Dates: start: 20120118
  6. FLUTICASONE PROPIONATE/SALMETEROL [Concomitant]
     Dosage: 25 MILLIGRAM
     Route: 055
     Dates: start: 20120118

REACTIONS (1)
  - LOSS OF CONSCIOUSNESS [None]
